FAERS Safety Report 11636787 (Version 1)
Quarter: 2015Q4

REPORT INFORMATION
  Report Type: Report from Study
  Country: US (occurrence: US)
  Receive Date: 20151016
  Receipt Date: 20151016
  Transmission Date: 20160304
  Serious: Yes (Other)
  Sender: FDA-Public Use
  Company Number: US-MALLINCKRODT-T201504707

PATIENT
  Age: 1 Year
  Sex: Female

DRUGS (1)
  1. MORPHINE [Suspect]
     Active Substance: MORPHINE
     Indication: PRODUCT USED FOR UNKNOWN INDICATION
     Dosage: 1/2 TABLET
     Route: 065
     Dates: start: 20090901

REACTIONS (5)
  - Accidental exposure to product by child [Unknown]
  - Vomiting [Unknown]
  - Somnolence [Unknown]
  - Ataxia [Unknown]
  - Overdose [Unknown]

NARRATIVE: CASE EVENT DATE: 20090901
